FAERS Safety Report 12323742 (Version 1)
Quarter: 2016Q2

REPORT INFORMATION
  Report Type: Spontaneous
  Country: US (occurrence: US)
  Receive Date: 20160502
  Receipt Date: 20160502
  Transmission Date: 20160815
  Serious: Yes (Death, Other)
  Sender: FDA-Public Use
  Company Number: US-AMGEN-USASP2016052746

PATIENT
  Age: 49 Year
  Sex: Female

DRUGS (4)
  1. ZOLEDRONIC ACID [Concomitant]
     Active Substance: ZOLEDRONIC ACID
  2. IPILIMUMAB [Concomitant]
     Active Substance: IPILIMUMAB
     Indication: METASTATIC MALIGNANT MELANOMA
  3. CALCITONIN [Concomitant]
     Active Substance: CALCITONIN
  4. XGEVA [Suspect]
     Active Substance: DENOSUMAB
     Indication: PRODUCT USED FOR UNKNOWN INDICATION
     Dosage: UNK
     Route: 065

REACTIONS (11)
  - Malignant neoplasm progression [Fatal]
  - Erythema [Unknown]
  - Parathyroid hormone-related protein increased [Unknown]
  - Drug resistance [Unknown]
  - Pain in extremity [Unknown]
  - Hypercalcaemia [Unknown]
  - Vitamin D decreased [Unknown]
  - Cachexia [Unknown]
  - Swelling [Unknown]
  - Blood corticotrophin decreased [Unknown]
  - Lymphadenitis [Unknown]
